FAERS Safety Report 5381706-7 (Version None)
Quarter: 2007Q2

REPORT INFORMATION
  Report Type: 
  Country: None (occurrence: None)
  Receive Date: 20070629
  Receipt Date: 20070328
  Transmission Date: 20071010
  Serious: Yes (Hospitalization)
  Sender: FDA-Public Use
  Company Number: US200703006042

PATIENT
  Age: 60 Year
  Sex: Female

DRUGS (2)
  1. HUMALOG MIX 75/25 [Suspect]
  2. HUMALOG MIX 25L / 75NPL PEN (HUMALOG MIX 25L / 75NPL PEN) PEN,DISPOSAB [Concomitant]

REACTIONS (1)
  - COLON OPERATION [None]
